FAERS Safety Report 9814667 (Version 1)
Quarter: 2014Q1

REPORT INFORMATION
  Report Type: Spontaneous
  Country: US (occurrence: US)
  Receive Date: 20140113
  Receipt Date: 20140113
  Transmission Date: 20141002
  Serious: Yes (Other)
  Sender: FDA-Public Use
  Company Number: CHPA2014US000645

PATIENT
  Age: 53 Year
  Sex: Male

DRUGS (9)
  1. 4 WAY SALINE MOISTURIZING MIST [Suspect]
     Indication: NASAL CONGESTION
     Dosage: 1 TO 2 DF, PRN
     Route: 045
  2. 4 WAY SALINE MOISTURIZING MIST [Suspect]
     Indication: SINUS DISORDER
  3. 4 WAY SALINE MOISTURIZING MIST [Suspect]
     Indication: OFF LABEL USE
  4. 4 WAY MENTHOLATED NASAL SPRAY [Suspect]
     Indication: NASAL CONGESTION
     Dosage: 1 TO 2 DF, PRN
     Route: 045
  5. 4 WAY MENTHOLATED NASAL SPRAY [Suspect]
     Indication: SINUS DISORDER
  6. 4 WAY MENTHOLATED NASAL SPRAY [Suspect]
     Indication: OFF LABEL USE
  7. 4 WAY FAST ACTING NASAL SPRAY [Suspect]
     Indication: NASAL CONGESTION
     Dosage: 1 TO 2 DF, PRN
     Route: 045
  8. 4 WAY FAST ACTING NASAL SPRAY [Suspect]
     Indication: SINUS DISORDER
  9. 4 WAY FAST ACTING NASAL SPRAY [Suspect]
     Indication: OFF LABEL USE

REACTIONS (7)
  - Joint injury [Not Recovered/Not Resolved]
  - Sinus disorder [Unknown]
  - Procedural pain [Unknown]
  - Dyspnoea [Unknown]
  - Expired drug administered [Unknown]
  - Therapeutic response unexpected [Unknown]
  - Underdose [Unknown]
